FAERS Safety Report 19139123 (Version 1)
Quarter: 2021Q2

REPORT INFORMATION
  Report Type: Spontaneous
  Country: US (occurrence: US)
  Receive Date: 20210414
  Receipt Date: 20210414
  Transmission Date: 20210717
  Serious: Yes (Life-Threatening, Hospitalization)
  Sender: FDA-Public Use
  Company Number: None

PATIENT
  Age: 63 Year
  Sex: Female
  Weight: 57.6 kg

DRUGS (2)
  1. IOPAMIDOL [Suspect]
     Active Substance: IOPAMIDOL
     Indication: BACK PAIN
     Dosage: ?          OTHER FREQUENCY:ONCE;?
     Route: 040
     Dates: start: 20210405, end: 20210405
  2. IOPAMIDOL [Suspect]
     Active Substance: IOPAMIDOL
     Indication: ABDOMINAL PAIN
     Dosage: ?          OTHER FREQUENCY:ONCE;?
     Route: 040
     Dates: start: 20210405, end: 20210405

REACTIONS (5)
  - Hypoxia [None]
  - Contrast media reaction [None]
  - Respiratory failure [None]
  - Anaphylactic reaction [None]
  - Respiratory distress [None]

NARRATIVE: CASE EVENT DATE: 20210405
